FAERS Safety Report 15255384 (Version 1)
Quarter: 2018Q3

REPORT INFORMATION
  Report Type: Spontaneous
  Country: US (occurrence: US)
  Receive Date: 20180717
  Receipt Date: 20180717
  Transmission Date: 20181010
  Serious: Yes (Life-Threatening, Hospitalization, Other)
  Sender: FDA-Public Use
  Company Number: None

PATIENT
  Age: 59 Year
  Sex: Female
  Weight: 47.25 kg

DRUGS (3)
  1. SUPREP BOWEL PREP [Suspect]
     Active Substance: MAGNESIUM SULFATE\POTASSIUM SULFATE\SODIUM SULFATE
     Indication: COLONOSCOPY
     Dosage: ?          QUANTITY:2 BOTTLE;?
     Route: 048
     Dates: start: 20180715, end: 20180716
  2. SUPREP BOWEL PREP [Suspect]
     Active Substance: MAGNESIUM SULFATE\POTASSIUM SULFATE\SODIUM SULFATE
     Indication: BOWEL PREPARATION
     Dosage: ?          QUANTITY:2 BOTTLE;?
     Route: 048
     Dates: start: 20180715, end: 20180716
  3. HYDROCHLOROTHIAZIDE. [Concomitant]
     Active Substance: HYDROCHLOROTHIAZIDE

REACTIONS (9)
  - Unresponsive to stimuli [None]
  - Pain [None]
  - Dehydration [None]
  - Blood potassium decreased [None]
  - Aphasia [None]
  - Crying [None]
  - Muscle spasms [None]
  - Asthenia [None]
  - Blood calcium decreased [None]

NARRATIVE: CASE EVENT DATE: 20180716
